FAERS Safety Report 10250383 (Version 1)
Quarter: 2014Q2

REPORT INFORMATION
  Report Type: Spontaneous
  Country: US (occurrence: None)
  Receive Date: 20140618
  Receipt Date: 20140618
  Transmission Date: 20141212
  Serious: Yes (Hospitalization)
  Sender: FDA-Public Use
  Company Number: None

PATIENT
  Age: 35 Year
  Sex: Female

DRUGS (1)
  1. DIETARY SUPPLEMENT [Suspect]
     Indication: WEIGHT DECREASED
     Dates: start: 20130520, end: 20130703

REACTIONS (3)
  - Chest discomfort [None]
  - Dyspnoea [None]
  - Heart rate increased [None]
